FAERS Safety Report 9116563 (Version 1)
Quarter: 2013Q1

REPORT INFORMATION
  Report Type: Report from Study
  Country: FR (occurrence: FR)
  Receive Date: 20130225
  Receipt Date: 20130225
  Transmission Date: 20140127
  Serious: Yes (Hospitalization)
  Sender: FDA-Public Use
  Company Number: FR-ROCHE-1141915

PATIENT
  Sex: Female
  Weight: 75 kg

DRUGS (3)
  1. MYCOPHENOLATE MOFETIL [Suspect]
     Indication: RENAL TRANSPLANT
     Route: 048
     Dates: start: 20120726, end: 20120918
  2. CERTICAN [Suspect]
     Indication: RENAL TRANSPLANT
     Route: 048
     Dates: start: 20120830, end: 20120918
  3. CORTANCYL [Suspect]
     Indication: RENAL TRANSPLANT
     Route: 048
     Dates: start: 20120803, end: 20121017

REACTIONS (2)
  - Renal failure acute [Recovered/Resolved]
  - Gastrointestinal disorder [Recovered/Resolved]
